FAERS Safety Report 7532441-8 (Version None)
Quarter: 2011Q2

REPORT INFORMATION
  Report Type: 
  Country: None (occurrence: None)
  Receive Date: 20110601
  Receipt Date: 20110518
  Transmission Date: 20111010
  Serious: No
  Sender: FDA-Public Use
  Company Number: 2010P1002926

PATIENT
  Age: 76 Year
  Sex: Male
  Weight: 99.7913 kg

DRUGS (27)
  1. NIACIN [Concomitant]
  2. AMOXICILLIN [Concomitant]
  3. CENTRUM SILVER [Concomitant]
  4. CLOTRIMAZOLE [Concomitant]
  5. VYTORIN [Concomitant]
  6. MIRALAX [Concomitant]
  7. NEOMYCIN-POLYMIXIN-HYDROCORTISONE OTIC SOLUTION [Concomitant]
  8. HYDROCODONE-ACETAMINOPHEN 10/500 [Concomitant]
  9. LASIX [Concomitant]
  10. CITRACAL PLUS [Concomitant]
  11. CARVEDILOL [Concomitant]
  12. KETOTIFEN FUMARATE [Concomitant]
  13. FENTANYL [Suspect]
  14. LISIPINORIL [Concomitant]
  15. LANSOPRAZOLE [Concomitant]
  16. AMBIEM [Concomitant]
  17. POTASSIUM [Concomitant]
  18. FLUOCINOLONE ACETONIDE CREAM [Concomitant]
  19. MORPHINE PUMP [Concomitant]
  20. ASPIRIN [Concomitant]
  21. CLOTRIMAZOLE [Concomitant]
  22. SENNA LAX [Concomitant]
  23. FENTANYL [Suspect]
     Indication: BACK PAIN
     Dosage: 1 PATCH;Q2D;TDER
     Route: 062
     Dates: start: 20100710, end: 20101129
  24. FENTANYL [Suspect]
     Indication: KNEE ARTHROPLASTY
     Dosage: 1 PATCH;Q2D;TDER
     Route: 062
     Dates: start: 20100710, end: 20101129
  25. FENTANYL [Suspect]
     Indication: KNEE ARTHROPLASTY
     Dosage: TDER
     Route: 062
     Dates: start: 20101108, end: 20101129
  26. FENTANYL [Suspect]
     Indication: BACK PAIN
     Dosage: TDER
     Route: 062
     Dates: start: 20101108, end: 20101129
  27. FENTANYL [Suspect]

REACTIONS (27)
  - DIARRHOEA [None]
  - DEHYDRATION [None]
  - CONDITION AGGRAVATED [None]
  - MALAISE [None]
  - NECK PAIN [None]
  - PAIN [None]
  - ASPARTATE AMINOTRANSFERASE INCREASED [None]
  - DECREASED APPETITE [None]
  - FEELING ABNORMAL [None]
  - HEADACHE [None]
  - HYPERHIDROSIS [None]
  - CARDIAC DISORDER [None]
  - SPEECH DISORDER [None]
  - TREMOR [None]
  - ELECTROCARDIOGRAM ABNORMAL [None]
  - DIZZINESS [None]
  - PHOTOPHOBIA [None]
  - ABDOMINAL DISCOMFORT [None]
  - VOMITING [None]
  - PRODUCT QUALITY ISSUE [None]
  - DRUG WITHDRAWAL SYNDROME [None]
  - WEIGHT DECREASED [None]
  - NAUSEA [None]
  - NERVOUSNESS [None]
  - CHILLS [None]
  - BLOOD PRESSURE DECREASED [None]
  - ARTHRITIS [None]
